FAERS Safety Report 7761903-3 (Version None)
Quarter: 2011Q3

REPORT INFORMATION
  Report Type: 
  Country: None (occurrence: None)
  Receive Date: 20110920
  Receipt Date: 20110914
  Transmission Date: 20111222
  Serious: Yes (Life-Threatening, Hospitalization, Other)
  Sender: FDA-Public Use
  Company Number: CH-ELI_LILLY_AND_COMPANY-CH201109000657

PATIENT
  Sex: Male
  Weight: 80 kg

DRUGS (3)
  1. ASPEGIC 325 [Concomitant]
     Dosage: 500 MG, UNK
  2. PRASUGREL HYDROCHLORIDE [Suspect]
     Indication: ISCHAEMIA
     Dosage: 60 MG, LOADING DOSE
     Dates: start: 20110416
  3. PERLINGANIT [Concomitant]
     Dosage: 4 MG/H

REACTIONS (2)
  - CARDIAC PERFORATION [None]
  - CARDIAC TAMPONADE [None]
